FAERS Safety Report 7132060-1 (Version None)
Quarter: 2010Q4

REPORT INFORMATION
  Report Type: 
  Country: None (occurrence: None)
  Receive Date: 20101202
  Receipt Date: 20101118
  Transmission Date: 20110411
  Serious: Yes (Hospitalization)
  Sender: FDA-Public Use
  Company Number: PHFR2010GB02297

PATIENT
  Sex: Female

DRUGS (3)
  1. CLOZARIL [Suspect]
     Indication: PSYCHOTIC DISORDER
     Dosage: 150 MG, UNK
     Route: 048
     Dates: start: 20021219
  2. CLOZARIL [Suspect]
     Indication: INTENTIONAL SELF-INJURY
  3. CITALOPRAM [Concomitant]
     Indication: DEPRESSION
     Dosage: 40 MG, UNK

REACTIONS (4)
  - INTENTIONAL SELF-INJURY [None]
  - SEPSIS [None]
  - SURGERY [None]
  - WOUND [None]
